FAERS Safety Report 23102936 (Version 1)
Quarter: 2023Q4

REPORT INFORMATION
  Report Type: Spontaneous
  Country: US (occurrence: US)
  Receive Date: 20231025
  Receipt Date: 20231025
  Transmission Date: 20240110
  Serious: Yes (Other)
  Sender: FDA-Public Use
  Company Number: US-PADAGIS-2023PAD01499

PATIENT

DRUGS (1)
  1. TESTOSTERONE GEL 1.62% [Suspect]
     Active Substance: TESTOSTERONE
     Indication: Transgender hormonal therapy
     Dosage: UNK, QOD (EVERY OTHER DAY)
     Route: 061

REACTIONS (2)
  - Idiopathic intracranial hypertension [Unknown]
  - Product use in unapproved indication [Unknown]
